FAERS Safety Report 4927825-8 (Version None)
Quarter: 2006Q1

REPORT INFORMATION
  Report Type: 
  Country: None (occurrence: None)
  Receive Date: 20060127
  Receipt Date: 20051031
  Transmission Date: 20060701
  Serious: Yes (Other)
  Sender: FDA-Public Use
  Company Number: 2005125488

PATIENT
  Age: 89 Year
  Sex: Male
  Weight: 92.9874 kg

DRUGS (4)
  1. LYRICA [Suspect]
     Indication: POST HERPETIC NEURALGIA
     Dosage: 50 MG (50 MG, 1 IN 1 D) UNKNOWN
     Route: 065
     Dates: start: 20050902
  2. AGGRENOX [Concomitant]
  3. ZANTAC [Concomitant]
  4. NORTRIPTYLINE (NORTRIPTYLINE) [Concomitant]

REACTIONS (1)
  - PAIN [None]
